FAERS Safety Report 5753965-X (Version None)
Quarter: 2008Q2

REPORT INFORMATION
  Report Type: 
  Country: None (occurrence: None)
  Receive Date: 20080530
  Receipt Date: 20080521
  Transmission Date: 20081010
  Serious: Yes (Congenital Anomaly, Other)
  Sender: FDA-Public Use
  Company Number: GB-ABBOTT-08P-167-0441236-00

PATIENT
  Sex: Male

DRUGS (1)
  1. VALPROIC ACID [Suspect]
     Indication: DRUG EXPOSURE DURING PREGNANCY
     Route: 064

REACTIONS (23)
  - AGGRESSION [None]
  - ASOCIAL BEHAVIOUR [None]
  - CONGENITAL NOSE MALFORMATION [None]
  - CONVULSION [None]
  - COORDINATION ABNORMAL [None]
  - DEVELOPMENTAL DELAY [None]
  - DRUG EXPOSURE DURING PREGNANCY [None]
  - DYSMORPHISM [None]
  - EAR MALFORMATION [None]
  - ENDOTRACHEAL INTUBATION COMPLICATION [None]
  - FEBRILE CONVULSION [None]
  - FOETAL ANTICONVULSANT SYNDROME [None]
  - FOOT DEFORMITY [None]
  - GAIT DISTURBANCE [None]
  - HYPOKINESIA [None]
  - ILLITERACY [None]
  - LIMB MALFORMATION [None]
  - LIP DISORDER [None]
  - RESPIRATORY TRACT INFECTION [None]
  - SKULL MALFORMATION [None]
  - SPEECH DISORDER DEVELOPMENTAL [None]
  - STRABISMUS [None]
  - URINARY INCONTINENCE [None]
